FAERS Safety Report 13773086 (Version 1)
Quarter: 2017Q3

REPORT INFORMATION
  Report Type: Spontaneous
  Country: FR (occurrence: FR)
  Receive Date: 20170720
  Receipt Date: 20170720
  Transmission Date: 20171127
  Serious: Yes (Other)
  Sender: FDA-Public Use
  Company Number: FR-PFIZER INC-2017310581

PATIENT
  Age: 59 Year
  Sex: Male

DRUGS (5)
  1. ENBREL [Suspect]
     Active Substance: ETANERCEPT
     Indication: PSORIASIS
     Dosage: 50 MG WEEKLY TO 50 MG EVERY 3 WEEKS DEPENDING ON PSORIASIS SEVERITY
     Route: 058
     Dates: start: 201001, end: 201704
  2. METHOTREXATE SODIUM. [Suspect]
     Active Substance: METHOTREXATE SODIUM
     Indication: PSORIASIS
     Dosage: CUMULATIVE DOSE OF 1270 MG
     Dates: end: 200806
  3. METHOTREXATE SODIUM. [Suspect]
     Active Substance: METHOTREXATE SODIUM
     Dosage: 15 MG, WEEKLY
     Dates: start: 200811, end: 201001
  4. REMICADE [Suspect]
     Active Substance: INFLIXIMAB
     Indication: PSORIASIS
     Dosage: 5 MG/KG, CYCLIC (4 COURSES: W0, W2, W6 AND W14)
     Route: 042
     Dates: start: 200806, end: 200809
  5. RAPTIVA [Suspect]
     Active Substance: EFALIZUMAB
     Indication: PSORIASIS
     Dosage: 1 DF, WEEKLY
     Route: 058
     Dates: start: 200809, end: 200811

REACTIONS (1)
  - Adenocarcinoma gastric [Not Recovered/Not Resolved]

NARRATIVE: CASE EVENT DATE: 201705
